FAERS Safety Report 9356124 (Version 1)
Quarter: 2013Q2

REPORT INFORMATION
  Report Type: Spontaneous
  Country: IT (occurrence: None)
  Receive Date: 20130614
  Receipt Date: 20130614
  Transmission Date: 20140414
  Serious: Yes (Other)
  Sender: FDA-Public Use
  Company Number: AUR-APL-2013-04897

PATIENT
  Age: 78 Year
  Sex: Male

DRUGS (1)
  1. OLANZAPINE (OLANZAPINE) [Suspect]
     Indication: HALLUCINATION, VISUAL
     Route: 048
     Dates: start: 20130101

REACTIONS (2)
  - Dyskinesia [None]
  - Hypertonia [None]
